FAERS Safety Report 20911044 (Version 1)
Quarter: 2022Q2

REPORT INFORMATION
  Report Type: Spontaneous
  Country: GB (occurrence: GB)
  Receive Date: 20220603
  Receipt Date: 20220603
  Transmission Date: 20220721
  Serious: Yes (Death, Hospitalization, Other)
  Sender: FDA-Public Use
  Company Number: None

PATIENT
  Age: 55 Year
  Sex: Male
  Weight: 76.15 kg

DRUGS (14)
  1. ENOXAPARIN SODIUM [Suspect]
     Active Substance: ENOXAPARIN SODIUM
     Indication: Subclavian vein thrombosis
     Dosage: 80 MG, QD
     Route: 058
     Dates: start: 20220124, end: 20220210
  2. ALLOPURINOL [Concomitant]
     Active Substance: ALLOPURINOL
     Dosage: 100 MG, QD
     Dates: start: 2022
  3. BISACODYL [Concomitant]
     Active Substance: BISACODYL
     Dosage: 10 MG, PRN
  4. BUPRENORPHINE [Concomitant]
     Active Substance: BUPRENORPHINE
     Dosage: 10 MG, QW
  5. CARBIMAZOLE [Concomitant]
     Active Substance: CARBIMAZOLE
     Dosage: 15 MG, QD
     Dates: start: 2022
  6. GLYCERIN [Concomitant]
     Active Substance: GLYCERIN
     Dosage: 4 MG, PRN
  7. LANSOPRAZOLE [Concomitant]
     Active Substance: LANSOPRAZOLE
     Dosage: 30 MG, QD
  8. AMITRIPTYLINE [Concomitant]
     Active Substance: AMITRIPTYLINE
     Dosage: 25MG/5ML, AT NIGHT
  9. CYCLIZINE [Concomitant]
     Active Substance: CYCLIZINE
     Dosage: 50MG/ML
     Route: 030
  10. MORPHINE [Concomitant]
     Active Substance: MORPHINE
     Dosage: 10MG/5ML, 6DS PRN
  11. MORPHINE [Concomitant]
     Active Substance: MORPHINE
     Dosage: 5 MG, PRN
  12. ONDANSETRON [Concomitant]
     Active Substance: ONDANSETRON
     Dosage: 2MG/ML
  13. PROCHLORPERAZINE [Concomitant]
     Active Substance: PROCHLORPERAZINE
     Dosage: 12.5MG/ML
     Route: 030
  14. ALBUTEROL [Concomitant]
     Active Substance: ALBUTEROL
     Dosage: 5MG/2.5ML

REACTIONS (3)
  - Death [Fatal]
  - Haematemesis [Recovered/Resolved]
  - Post procedural haemorrhage [Recovered/Resolved]

NARRATIVE: CASE EVENT DATE: 20220217
